FAERS Safety Report 6709662-7 (Version None)
Quarter: 2010Q2

REPORT INFORMATION
  Report Type: 
  Country: None (occurrence: None)
  Receive Date: 20100504
  Receipt Date: 20100426
  Transmission Date: 20101027
  Serious: Yes (Other)
  Sender: FDA-Public Use
  Company Number: US-ROCHE-699375

PATIENT
  Sex: Female

DRUGS (2)
  1. TRASTUZUMAB [Suspect]
     Dosage: LOADING DOSE
     Route: 042
  2. TRASTUZUMAB [Suspect]
     Dosage: ON DAY 1, 7, 14, 21 AND 28
     Route: 042

REACTIONS (3)
  - IMPAIRED HEALING [None]
  - LYMPHOPENIA [None]
  - SKIN TOXICITY [None]
